FAERS Safety Report 19030430 (Version 3)
Quarter: 2021Q1

REPORT INFORMATION
  Report Type: Spontaneous
  Country: EE (occurrence: EE)
  Receive Date: 20210319
  Receipt Date: 20210327
  Transmission Date: 20210420
  Serious: Yes (Other)
  Sender: FDA-Public Use
  Company Number: EE-ROCHE-2792307

PATIENT
  Age: 71 Year
  Sex: Male

DRUGS (7)
  1. SOTALOL. [Concomitant]
     Active Substance: SOTALOL
  2. PROPAFENONE. [Concomitant]
     Active Substance: PROPAFENONE
  3. RAMIPRIL. [Concomitant]
     Active Substance: RAMIPRIL
  4. MABTHERA [Suspect]
     Active Substance: RITUXIMAB
     Indication: RHEUMATOID ARTHRITIS
     Dosage: TWO INFUSIONS OF 1000 MG IV 2 WEEKS APART
     Route: 042
     Dates: start: 2014
  5. MABTHERA [Suspect]
     Active Substance: RITUXIMAB
     Route: 042
     Dates: start: 202008
  6. ETANERCEPT [Concomitant]
     Active Substance: ETANERCEPT
     Indication: RHEUMATOID ARTHRITIS
     Dates: start: 2013
  7. MABTHERA [Suspect]
     Active Substance: RITUXIMAB
     Route: 042
     Dates: start: 20200208

REACTIONS (3)
  - Nasopharyngitis [Unknown]
  - Cerebral infarction [Recovered/Resolved with Sequelae]
  - Illness [Unknown]

NARRATIVE: CASE EVENT DATE: 202004
